FAERS Safety Report 5775337-4 (Version None)
Quarter: 2008Q2

REPORT INFORMATION
  Report Type: 
  Country: None (occurrence: None)
  Receive Date: 20080616
  Receipt Date: 20080616
  Transmission Date: 20081010
  Serious: Yes (Hospitalization, Other)
  Sender: FDA-Public Use
  Company Number: None

PATIENT
  Age: 51 Year
  Sex: Male
  Weight: 90.7194 kg

DRUGS (2)
  1. METHOTREXATE 25MG/ML BEDFORD LAB [Suspect]
     Indication: RHEUMATOID ARTHRITIS
     Dosage: 25MG ONCE A WEEK SQ
     Route: 058
     Dates: start: 20061009, end: 20080318
  2. ENBREL [Suspect]
     Indication: RHEUMATOID ARTHRITIS
     Dosage: 50MG ONCE A WEEK SL
     Route: 060
     Dates: start: 20070915, end: 20080310

REACTIONS (15)
  - BALANCE DISORDER [None]
  - BLOOD URINE PRESENT [None]
  - CHILLS [None]
  - COGNITIVE DISORDER [None]
  - DYSGRAPHIA [None]
  - GAIT DISTURBANCE [None]
  - HYPERHIDROSIS [None]
  - LYMPHADENOPATHY [None]
  - LYMPHOPROLIFERATIVE DISORDER [None]
  - NAUSEA [None]
  - PAROSMIA [None]
  - SOMNOLENCE [None]
  - SPEECH DISORDER [None]
  - THINKING ABNORMAL [None]
  - TREMOR [None]
